FAERS Safety Report 4832481-3 (Version None)
Quarter: 2005Q4

REPORT INFORMATION
  Report Type: 
  Country: None (occurrence: None)
  Receive Date: 20051117
  Receipt Date: 20051031
  Transmission Date: 20060501
  Serious: Yes (Other)
  Sender: FDA-Public Use
  Company Number: TRP_0643_2005

PATIENT
  Age: 47 Year
  Sex: Male
  Weight: 97.0698 kg

DRUGS (2)
  1. RIBASPHERE [Suspect]
     Indication: HEPATITIS C
     Dosage: DF, PO
     Route: 048
     Dates: start: 20050902
  2. PEG-INTRON [Suspect]
     Indication: HEPATITIS C
     Dosage: DF; SC
     Route: 058
     Dates: start: 20050902

REACTIONS (1)
  - INGUINAL HERNIA [None]
